FAERS Safety Report 13158765 (Version 4)
Quarter: 2017Q3

REPORT INFORMATION
  Report Type: Spontaneous
  Country: JP (occurrence: JP)
  Receive Date: 20170127
  Receipt Date: 20170711
  Transmission Date: 20171127
  Serious: Yes (Other)
  Sender: FDA-Public Use
  Company Number: JP-009507513-1610JPN005357

PATIENT
  Age: 74 Year
  Sex: Male

DRUGS (21)
  1. MENESIT TABLETS - 100 [Suspect]
     Active Substance: CARBIDOPA\LEVODOPA
     Indication: PARKINSON^S DISEASE
     Dosage: 100 MG, TID
     Route: 048
     Dates: start: 2014
  2. MENESIT TABLETS - 100 [Suspect]
     Active Substance: CARBIDOPA\LEVODOPA
     Dosage: 150 MG, TID
     Route: 048
  3. MENESIT TABLETS - 100 [Suspect]
     Active Substance: CARBIDOPA\LEVODOPA
     Dosage: 200 MG, TID
     Route: 048
  4. MENESIT TABLETS - 100 [Suspect]
     Active Substance: CARBIDOPA\LEVODOPA
     Dosage: 200 MG, BID
     Route: 048
  5. MENESIT TABLETS - 100 [Suspect]
     Active Substance: CARBIDOPA\LEVODOPA
     Dosage: UNK UNK, QD
     Route: 048
     Dates: start: 20161208, end: 20161208
  6. MENESIT TABLETS - 100 [Suspect]
     Active Substance: CARBIDOPA\LEVODOPA
     Dosage: 25 MG, TID
     Route: 048
     Dates: start: 20170328, end: 2017
  7. MENESIT TABLETS - 100 [Suspect]
     Active Substance: CARBIDOPA\LEVODOPA
     Dosage: 3 TIME PER DAY, 50MG IN THE MORNING AND NOON, AND 25MG IN THE EVENING
     Route: 048
     Dates: start: 201704
  8. MENESIT TABLETS - 100 [Suspect]
     Active Substance: CARBIDOPA\LEVODOPA
     Dosage: 50 MG, QID
     Route: 048
     Dates: start: 2017
  9. SEIBULE [Concomitant]
     Active Substance: MIGLITOL
     Dosage: UNK
     Route: 048
  10. FP-OD [Concomitant]
     Active Substance: SELEGILINE HYDROCHLORIDE
     Dosage: UNK, BID, 1 TABLET IN THE MORNING, 1 TABLET AT NOON
     Route: 048
  11. MENESIT TABLETS - 100 [Suspect]
     Active Substance: CARBIDOPA\LEVODOPA
     Dosage: BID, 200 MG IN THE MORNING, 150 MG IN THE EVENING
     Route: 048
  12. DOMPERIDONE [Concomitant]
     Active Substance: DOMPERIDONE
     Indication: GASTRIC DISORDER
     Dosage: UNK
     Route: 048
  13. MENESIT TABLETS - 100 [Suspect]
     Active Substance: CARBIDOPA\LEVODOPA
     Dosage: 25 MG, QID
     Route: 048
     Dates: end: 201703
  14. RIVASTACH [Suspect]
     Active Substance: RIVASTIGMINE
     Dosage: 1.5 DF, UNK
     Route: 062
     Dates: start: 201701
  15. DIAZEPAM. [Concomitant]
     Active Substance: DIAZEPAM
     Dosage: 0.5 DF, UNK
     Route: 048
     Dates: end: 201606
  16. MENESIT TABLETS - 100 [Suspect]
     Active Substance: CARBIDOPA\LEVODOPA
     Dosage: 100 MG, TID
     Route: 048
  17. ARTANE [Concomitant]
     Active Substance: TRIHEXYPHENIDYL HYDROCHLORIDE
     Dosage: UNK
     Route: 048
  18. BAYASPIRIN [Concomitant]
     Active Substance: ASPIRIN
     Dosage: UNK
     Route: 048
  19. DIAZEPAM. [Concomitant]
     Active Substance: DIAZEPAM
     Indication: INSOMNIA
     Dosage: 1 DF, PRN
     Route: 048
  20. MENESIT TABLETS - 100 [Suspect]
     Active Substance: CARBIDOPA\LEVODOPA
     Dosage: 100 MG, BID
     Route: 048
     Dates: start: 20161123, end: 20161123
  21. RIVASTACH [Suspect]
     Active Substance: RIVASTIGMINE
     Indication: DEMENTIA
     Dosage: 1.25 DF, UNK
     Route: 062
     Dates: start: 201603

REACTIONS (32)
  - Fatigue [Unknown]
  - Eating disorder [Unknown]
  - Drug dose omission [Unknown]
  - Balance disorder [Unknown]
  - Delirium [Unknown]
  - Tremor [Unknown]
  - Seizure [Unknown]
  - Asthenia [Unknown]
  - Musculoskeletal stiffness [Unknown]
  - Drug dose omission [Unknown]
  - Asthenia [Unknown]
  - Impaired driving ability [Unknown]
  - Dysphonia [Unknown]
  - Hypokinesia [Unknown]
  - Abnormal behaviour [Unknown]
  - Dysstasia [Unknown]
  - Adverse event [Unknown]
  - Constipation [Unknown]
  - Hallucination [Recovered/Resolved]
  - Drug dose omission [Unknown]
  - Drug dose omission [Unknown]
  - Product use issue [Unknown]
  - Abnormal behaviour [Unknown]
  - Muscular weakness [Unknown]
  - Memory impairment [Unknown]
  - Feeling abnormal [Unknown]
  - Disturbance in attention [Unknown]
  - Dizziness [Unknown]
  - Cognitive disorder [Recovering/Resolving]
  - Inappropriate schedule of drug administration [Unknown]
  - Abnormal behaviour [Unknown]
  - Abnormal behaviour [Unknown]

NARRATIVE: CASE EVENT DATE: 201609
